FAERS Safety Report 9630913 (Version 1)
Quarter: 2013Q4

REPORT INFORMATION
  Report Type: Spontaneous
  Country: BE (occurrence: BE)
  Receive Date: 20131018
  Receipt Date: 20131018
  Transmission Date: 20140711
  Serious: Yes (Hospitalization, Other)
  Sender: FDA-Public Use
  Company Number: BE-PFIZER INC-2013296435

PATIENT
  Sex: Female
  Weight: 62 kg

DRUGS (6)
  1. PANTOMED [Suspect]
     Indication: GASTRIC ULCER
     Dosage: 20 MG, DAILY
     Route: 048
     Dates: start: 201212, end: 201309
  2. CORUNO [Concomitant]
     Dosage: UNK
     Dates: start: 201212
  3. COVERSYL [Concomitant]
     Dosage: UNK
  4. L-THYROXINE [Concomitant]
     Dosage: UNK
  5. PLAVIX [Concomitant]
     Dosage: UNK
  6. SELOZOK [Concomitant]
     Dosage: UNK

REACTIONS (4)
  - Hypokalaemia [Unknown]
  - Hypokalaemia [Recovered/Resolved]
  - Arrhythmia [Unknown]
  - Hypomagnesaemia [Recovered/Resolved]
